FAERS Safety Report 16530734 (Version 1)
Quarter: 2019Q3

REPORT INFORMATION
  Report Type: Spontaneous
  Country: US (occurrence: US)
  Receive Date: 20190704
  Receipt Date: 20190704
  Transmission Date: 20191004
  Serious: Yes (Other)
  Sender: FDA-Public Use
  Company Number: US-TEVA-2019-US-1067748

PATIENT
  Age: 59 Year
  Sex: Female

DRUGS (2)
  1. LATUDA [Suspect]
     Active Substance: LURASIDONE HYDROCHLORIDE
     Route: 065
  2. AUSTEDO [Suspect]
     Active Substance: DEUTETRABENAZINE
     Indication: TARDIVE DYSKINESIA
     Dosage: TWICE DAILY
     Route: 048

REACTIONS (8)
  - Therapy cessation [Unknown]
  - Alcohol use [Unknown]
  - Weight increased [Unknown]
  - Schizophrenia [Unknown]
  - Bipolar disorder [Unknown]
  - Increased appetite [Unknown]
  - Hypothyroidism [Unknown]
  - Adverse event [Unknown]
